FAERS Safety Report 9911405 (Version 2)
Quarter: 2014Q3

REPORT INFORMATION
  Report Type: Report from Study
  Country: BR (occurrence: BR)
  Receive Date: 20140219
  Receipt Date: 20140730
  Transmission Date: 20150326
  Serious: Yes (Death, Other)
  Sender: FDA-Public Use
  Company Number: PHHY2014BR020429

PATIENT
  Sex: Male
  Weight: 77 kg

DRUGS (3)
  1. ACLASTA [Suspect]
     Active Substance: ZOLEDRONIC ACID
     Indication: OSTEOPOROSIS
     Dosage: UNK UKN, ONCE A YEAR
     Route: 042
     Dates: start: 2011
  2. ACLASTA [Suspect]
     Active Substance: ZOLEDRONIC ACID
     Dosage: 5 MG, ONCE A YEAR
     Route: 042
     Dates: start: 2012
  3. GLIFAGE [Concomitant]
     Active Substance: METFORMIN HYDROCHLORIDE
     Indication: DIABETES MELLITUS
     Dosage: 500 MG, UNK
     Dates: start: 2011

REACTIONS (10)
  - Weight decreased [Not Recovered/Not Resolved]
  - Abasia [Fatal]
  - Incoherent [Fatal]
  - Headache [Fatal]
  - Body height decreased [Unknown]
  - Brain neoplasm [Fatal]
  - Neoplasm [Fatal]
  - Malaise [Recovering/Resolving]
  - Brain neoplasm malignant [Fatal]
  - Aphasia [Fatal]
